FAERS Safety Report 15824599 (Version 1)
Quarter: 2019Q1

REPORT INFORMATION
  Report Type: Spontaneous
  Country: TW (occurrence: TW)
  Receive Date: 20190115
  Receipt Date: 20190115
  Transmission Date: 20190417
  Serious: Yes (Hospitalization)
  Sender: FDA-Public Use
  Company Number: TW-ASTELLAS-2019US001348

PATIENT
  Age: 55 Year
  Sex: Male

DRUGS (22)
  1. PREDNISOLONE. [Concomitant]
     Active Substance: PREDNISOLONE
     Route: 065
     Dates: start: 2009, end: 2009
  2. PREDNISOLONE. [Concomitant]
     Active Substance: PREDNISOLONE
     Route: 065
     Dates: start: 2009, end: 2009
  3. LEFLUNOMIDE. [Concomitant]
     Active Substance: LEFLUNOMIDE
     Indication: PROPHYLAXIS AGAINST TRANSPLANT REJECTION
     Route: 065
     Dates: start: 20090429, end: 2009
  4. PREDNISOLONE. [Concomitant]
     Active Substance: PREDNISOLONE
     Route: 065
     Dates: start: 2009, end: 2009
  5. LEFLUNOMIDE. [Concomitant]
     Active Substance: LEFLUNOMIDE
     Dosage: 30 MG DAILY DOSE, THRICE DAILY
     Route: 065
     Dates: start: 20090608
  6. METHYLPREDNISOLONE. [Concomitant]
     Active Substance: METHYLPREDNISOLONE
     Dosage: 500 MG DAILY DOSE, UNKNOWN FREQ.
     Route: 065
     Dates: start: 200905, end: 200905
  7. TACROLIMUS. [Suspect]
     Active Substance: TACROLIMUS
     Dosage: 4 MG DAILY DOSE, TWICE DAILY
     Route: 065
     Dates: start: 2009
  8. METHYLPREDNISOLONE. [Concomitant]
     Active Substance: METHYLPREDNISOLONE
     Indication: PROPHYLAXIS AGAINST TRANSPLANT REJECTION
     Dosage: UNK UNK, UNKNOWN FREQ.
     Route: 065
     Dates: start: 20081230
  9. PREDNISOLONE. [Concomitant]
     Active Substance: PREDNISOLONE
     Route: 065
     Dates: start: 2009, end: 2009
  10. PREDNISOLONE. [Concomitant]
     Active Substance: PREDNISOLONE
     Route: 065
     Dates: start: 2009
  11. CYCLOSPORINE. [Concomitant]
     Active Substance: CYCLOSPORINE
     Indication: PROPHYLAXIS AGAINST TRANSPLANT REJECTION
     Dosage: 50 MG DAILY DOSE, TWICE DAILY
     Route: 065
     Dates: start: 200904
  12. LEFLUNOMIDE. [Concomitant]
     Active Substance: LEFLUNOMIDE
     Route: 065
  13. TACROLIMUS. [Suspect]
     Active Substance: TACROLIMUS
     Dosage: 4 MG DAILY DOSE, TWICE DAILY
     Route: 065
     Dates: start: 20090316
  14. PREDNISOLONE. [Concomitant]
     Active Substance: PREDNISOLONE
     Indication: PROPHYLAXIS AGAINST TRANSPLANT REJECTION
     Route: 065
     Dates: start: 200903, end: 200903
  15. PREDNISOLONE. [Concomitant]
     Active Substance: PREDNISOLONE
     Route: 065
     Dates: start: 2009, end: 2009
  16. MYFORTIC [Concomitant]
     Active Substance: MYCOPHENOLATE SODIUM
     Indication: PROPHYLAXIS AGAINST TRANSPLANT REJECTION
     Dosage: 6 UNIT DOSE DAILY DOSE, TWICE DAILY
     Route: 065
     Dates: start: 200903, end: 200904
  17. TACROLIMUS. [Suspect]
     Active Substance: TACROLIMUS
     Dosage: 8 MG DAILY DOSE, TWICE DAILY
     Route: 065
     Dates: start: 20081231, end: 20090125
  18. TACROLIMUS. [Suspect]
     Active Substance: TACROLIMUS
     Dosage: 6 MG DAILY DOSE, TWICE DAILY
     Route: 065
     Dates: start: 20090126, end: 20090315
  19. PREDNISOLONE. [Concomitant]
     Active Substance: PREDNISOLONE
     Route: 065
     Dates: start: 2009, end: 2009
  20. TACROLIMUS. [Suspect]
     Active Substance: TACROLIMUS
     Indication: PROPHYLAXIS AGAINST TRANSPLANT REJECTION
     Dosage: UNK, UNKNOWN FREQ.
     Route: 065
     Dates: start: 200812, end: 20081230
  21. TACROLIMUS. [Suspect]
     Active Substance: TACROLIMUS
     Dosage: 4 UNIT DOSE DAILY DOSE TWICE DAILY
     Route: 065
     Dates: start: 20090317, end: 200904
  22. METHYLPREDNISOLONE. [Concomitant]
     Active Substance: METHYLPREDNISOLONE
     Dosage: 500 MG DAILY DOSE, UNKNOWN FREQ.
     Route: 065
     Dates: start: 200903, end: 200903

REACTIONS (5)
  - Transplant rejection [Unknown]
  - Nephropathy [Unknown]
  - Nephritis [Unknown]
  - Nephropathy toxic [Unknown]
  - Transplant rejection [Unknown]

NARRATIVE: CASE EVENT DATE: 200812
